FAERS Safety Report 14665777 (Version 1)
Quarter: 2018Q1

REPORT INFORMATION
  Report Type: Spontaneous
  Country: ES (occurrence: ES)
  Receive Date: 20180321
  Receipt Date: 20180321
  Transmission Date: 20180509
  Serious: Yes (Life-Threatening, Hospitalization)
  Sender: FDA-Public Use
  Company Number: ES-TEVA-2018-ES-869953

PATIENT
  Age: 14 Year
  Sex: Female

DRUGS (4)
  1. FERO-GRADUMET 105 MG PROLONGED RELEASE TABLETS, 30 TABLETS [Concomitant]
     Dosage: 1 TABLET DAILY
  2. MYCOPHENOLATE MOFETIL. [Suspect]
     Active Substance: MYCOPHENOLATE MOFETIL
     Dosage: 750 MG EVERY 24 HOURS
     Route: 048
  3. IDEOS UNIDIA 1000 MG/880 UI EFFERVESCENT GRANULATE, 30 ENVELOPES [Concomitant]
     Dosage: 1 TABLET DAILY
  4. TACROLIMUS. [Suspect]
     Active Substance: TACROLIMUS
     Dosage: 4 MG EVERY 12 HOURS
     Route: 048

REACTIONS (1)
  - Agranulocytosis [Recovering/Resolving]
